FAERS Safety Report 16665224 (Version 1)
Quarter: 2019Q3

REPORT INFORMATION
  Report Type: Spontaneous
  Country: US (occurrence: US)
  Receive Date: 20190803
  Receipt Date: 20190803
  Transmission Date: 20191004
  Serious: Yes (Other)
  Sender: FDA-Public Use
  Company Number: US-ACCORD-116701

PATIENT
  Age: 46 Year
  Sex: Female

DRUGS (29)
  1. HYDROCODONE [Concomitant]
     Active Substance: HYDROCODONE
     Dates: start: 20140707, end: 20170601
  2. ALPRAZOLAM. [Concomitant]
     Active Substance: ALPRAZOLAM
  3. FOLIC ACID. [Concomitant]
     Active Substance: FOLIC ACID
  4. HYDROCHLOROTHIAZIDE. [Concomitant]
     Active Substance: HYDROCHLOROTHIAZIDE
     Dates: start: 20130807, end: 20141225
  5. FLUTICASONE. [Concomitant]
     Active Substance: FLUTICASONE
  6. LETROZOLE. [Concomitant]
     Active Substance: LETROZOLE
  7. CETIRIZINE [Concomitant]
     Active Substance: CETIRIZINE HYDROCHLORIDE
  8. DIAZEPAM. [Concomitant]
     Active Substance: DIAZEPAM
  9. PRAVASTATIN. [Concomitant]
     Active Substance: PRAVASTATIN
  10. ONGLYZA [Concomitant]
     Active Substance: SAXAGLIPTIN HYDROCHLORIDE
     Dates: start: 20140204, end: 20170520
  11. JANUVIA [Concomitant]
     Active Substance: SITAGLIPTIN PHOSPHATE
  12. ERGOCALCIFEROL. [Concomitant]
     Active Substance: ERGOCALCIFEROL
  13. LANTUS [Concomitant]
     Active Substance: INSULIN GLARGINE
  14. GABAPENTIN. [Concomitant]
     Active Substance: GABAPENTIN
     Dates: start: 20130806, end: 20141015
  15. LISINOPRIL. [Concomitant]
     Active Substance: LISINOPRIL
     Dates: start: 20140710, end: 20161227
  16. LYRICA [Concomitant]
     Active Substance: PREGABALIN
  17. OMEPRAZOLE. [Concomitant]
     Active Substance: OMEPRAZOLE
  18. CARVEDILOL/CARVEDILOL HYDROCHLODRIDE [Concomitant]
     Dates: start: 20130918
  19. NIFEDICAL XL [Concomitant]
     Active Substance: NIFEDIPINE
  20. AMOXICILLIN/CLAVULANIC ACID [Concomitant]
  21. TOBRAMYCIN. [Concomitant]
     Active Substance: TOBRAMYCIN
  22. AZITHROMYCIN ANHYDROUS. [Concomitant]
     Active Substance: AZITHROMYCIN ANHYDROUS
  23. DULOXETINE. [Concomitant]
     Active Substance: DULOXETINE
     Dates: start: 20160114, end: 20161204
  24. DIAZEPAM. [Concomitant]
     Active Substance: DIAZEPAM
     Dates: start: 20140707, end: 20170105
  25. DOCETAXEL ACCORD [Suspect]
     Active Substance: DOCETAXEL
     Indication: BREAST CANCER
     Dosage: FOR 2 HOURS
     Dates: start: 20140904, end: 20141231
  26. PARAPLATIN [Suspect]
     Active Substance: CARBOPLATIN
     Indication: BREAST CANCER
     Dosage: FOR 2 HOURS
     Dates: start: 20140904, end: 20141231
  27. VIMPAT [Concomitant]
     Active Substance: LACOSAMIDE
     Dates: start: 20140207
  28. CLOPIDOGREL [Concomitant]
     Active Substance: CLOPIDOGREL BISULFATE
  29. LEVOFLOXACIN. [Concomitant]
     Active Substance: LEVOFLOXACIN

REACTIONS (1)
  - Alopecia [Not Recovered/Not Resolved]

NARRATIVE: CASE EVENT DATE: 20150630
